FAERS Safety Report 25036712 (Version 2)
Quarter: 2025Q2

REPORT INFORMATION
  Report Type: Report from Study
  Country: US (occurrence: US)
  Receive Date: 20250304
  Receipt Date: 20250405
  Transmission Date: 20250717
  Serious: No
  Sender: ABBVIE
  Company Number: US-ABBVIE-6155374

PATIENT
  Age: 78 Year
  Sex: Male
  Weight: 98 kg

DRUGS (2)
  1. RISANKIZUMAB [Suspect]
     Active Substance: RISANKIZUMAB
     Indication: Psoriasis
     Route: 058
     Dates: start: 20241216, end: 20241216
  2. RISANKIZUMAB [Suspect]
     Active Substance: RISANKIZUMAB
     Route: 058
     Dates: start: 20250116, end: 20250116

REACTIONS (2)
  - Pruritus [Unknown]
  - Drug ineffective [Unknown]

NARRATIVE: CASE EVENT DATE: 20240501
